FAERS Safety Report 14073150 (Version 1)
Quarter: 2017Q4

REPORT INFORMATION
  Report Type: Other
  Country: CA (occurrence: CA)
  Receive Date: 20171011
  Receipt Date: 20171011
  Transmission Date: 20180321
  Serious: Yes (Hospitalization, Disabling, Other)
  Sender: FDA-Public Use
  Company Number: CA-APOTEX-2017AP019422

PATIENT
  Age: 76 Year
  Sex: Male
  Weight: 107 kg

DRUGS (1)
  1. APO-PRAVASTATIN [Suspect]
     Active Substance: PRAVASTATIN
     Indication: DYSLIPIDAEMIA
     Dosage: 80 MG, QD
     Route: 048

REACTIONS (1)
  - Cardiac failure [Not Recovered/Not Resolved]
